FAERS Safety Report 14675092 (Version 1)
Quarter: 2018Q1

REPORT INFORMATION
  Report Type: Spontaneous
  Country: BR (occurrence: BR)
  Receive Date: 20180323
  Receipt Date: 20180323
  Transmission Date: 20180509
  Serious: Yes (Hospitalization)
  Sender: FDA-Public Use
  Company Number: PHHY2017BR073071

PATIENT
  Age: 80 Year
  Sex: Male
  Weight: 58.6 kg

DRUGS (2)
  1. DIOVAN HCT [Suspect]
     Active Substance: HYDROCHLOROTHIAZIDE\VALSARTAN
     Indication: HYPERTENSION
     Dosage: 1 DF, QD
     Route: 048
  2. NATRILIX [Suspect]
     Active Substance: INDAPAMIDE
     Indication: HYPERTENSION
     Dosage: 1 DF, QD
     Route: 048

REACTIONS (7)
  - Ischaemic stroke [Recovered/Resolved]
  - Retinal ischaemia [Recovering/Resolving]
  - Eye disorder [Recovering/Resolving]
  - Cerebral ischaemia [Recovered/Resolved]
  - Hypotony of eye [Recovered/Resolved]
  - Speech disorder [Recovered/Resolved]
  - Ischaemia [Recovered/Resolved]
